FAERS Safety Report 19497496 (Version 3)
Quarter: 2022Q1

REPORT INFORMATION
  Report Type: Spontaneous
  Country: CA (occurrence: None)
  Receive Date: 20210706
  Receipt Date: 20220105
  Transmission Date: 20220423
  Serious: Yes (Hospitalization, Disabling)
  Sender: FDA-Public Use
  Company Number: CA-ROCHE-2861235

PATIENT
  Age: 55 Year
  Sex: Male
  Weight: 74 kg

DRUGS (13)
  1. RITUXIMAB [Suspect]
     Active Substance: RITUXIMAB
     Indication: Granulomatosis with polyangiitis
     Route: 042
  2. ACETAMINOPHEN [Concomitant]
     Active Substance: ACETAMINOPHEN
     Indication: Premedication
  3. ALENDRONATE SODIUM [Concomitant]
     Active Substance: ALENDRONATE SODIUM
  4. ALPRAZOLAM [Concomitant]
     Active Substance: ALPRAZOLAM
  5. CALCIUM [Concomitant]
     Active Substance: CALCIUM
  6. DILANTIN [Concomitant]
     Active Substance: PHENYTOIN
  7. DILANTIN [Concomitant]
     Active Substance: PHENYTOIN
  8. DIPHENHYDRAMINE [Concomitant]
     Active Substance: DIPHENHYDRAMINE
     Indication: Premedication
  9. METHYLPREDNISOLONE SODIUM SUCCINATE [Concomitant]
     Active Substance: METHYLPREDNISOLONE SODIUM SUCCINATE
     Indication: Premedication
  10. MYCOPHENOLATE MOFETIL [Concomitant]
     Active Substance: MYCOPHENOLATE MOFETIL
  11. MYCOPHENOLATE MOFETIL [Concomitant]
     Active Substance: MYCOPHENOLATE MOFETIL
  12. PREGABALIN [Concomitant]
     Active Substance: PREGABALIN
     Route: 065
  13. TADALAFIL [Concomitant]
     Active Substance: TADALAFIL

REACTIONS (12)
  - Bladder disorder [Not Recovered/Not Resolved]
  - Blood pressure fluctuation [Not Recovered/Not Resolved]
  - Headache [Not Recovered/Not Resolved]
  - Hip fracture [Not Recovered/Not Resolved]
  - Off label use [Unknown]
  - Product use issue [Unknown]
  - Contusion [Not Recovered/Not Resolved]
  - Fall [Unknown]
  - Intentional product use issue [Unknown]
  - Quality of life decreased [Not Recovered/Not Resolved]
  - Rectal discharge [Not Recovered/Not Resolved]
  - Urine output increased [Not Recovered/Not Resolved]
